FAERS Safety Report 18695187 (Version 1)
Quarter: 2021Q1

REPORT INFORMATION
  Report Type: Spontaneous
  Country: CA (occurrence: CA)
  Receive Date: 20210104
  Receipt Date: 20210104
  Transmission Date: 20210419
  Serious: Yes (Hospitalization)
  Sender: FDA-Public Use
  Company Number: CA-PFIZER INC-2020517362

PATIENT
  Age: 69 Year
  Sex: Female
  Weight: 61 kg

DRUGS (16)
  1. CYCLOPHOSPHAMIDE. [Suspect]
     Active Substance: CYCLOPHOSPHAMIDE
     Indication: BREAST CANCER METASTATIC
  2. DEXAMETHASONE. [Suspect]
     Active Substance: DEXAMETHASONE
     Indication: BREAST CANCER METASTATIC
  3. CITALOPRAM [Concomitant]
     Active Substance: CITALOPRAM HYDROBROMIDE
  4. FRAGMIN [Concomitant]
     Active Substance: DALTEPARIN SODIUM
  5. RESTORIL [CHLORMEZANONE] [Concomitant]
     Active Substance: CHLORMEZANONE
  6. CARBOXYMETHYLCELLULOSE [Concomitant]
     Active Substance: CARBOXYMETHYLCELLULOSE
  7. PANTOPRAZOLE [Concomitant]
     Active Substance: PANTOPRAZOLE
  8. ONDANSETRON [Suspect]
     Active Substance: ONDANSETRON
     Indication: BREAST CANCER METASTATIC
  9. CLONAZEPAM. [Concomitant]
     Active Substance: CLONAZEPAM
  10. DOMPERIDONE [Concomitant]
     Active Substance: DOMPERIDONE
  11. VITAMIN D3 [Concomitant]
     Active Substance: CHOLECALCIFEROL
  12. LORAZEPAM. [Suspect]
     Active Substance: LORAZEPAM
     Indication: BREAST CANCER METASTATIC
  13. EPIRUBICIN HCL [Suspect]
     Active Substance: EPIRUBICIN HYDROCHLORIDE
     Indication: BREAST CANCER METASTATIC
  14. EMEND [Suspect]
     Active Substance: APREPITANT
     Indication: BREAST CANCER METASTATIC
     Dosage: UNK
  15. LAX?A?DAY [Concomitant]
     Active Substance: POLYETHYLENE GLYCOL 3350
  16. SYNTHROID [Concomitant]
     Active Substance: LEVOTHYROXINE SODIUM

REACTIONS (2)
  - Off label use [Unknown]
  - Febrile neutropenia [Recovered/Resolved]
